FAERS Safety Report 17801640 (Version 1)
Quarter: 2020Q2

REPORT INFORMATION
  Report Type: Report from Study
  Country: US (occurrence: US)
  Receive Date: 20200519
  Receipt Date: 20200519
  Transmission Date: 20200714
  Serious: Yes (Other)
  Sender: FDA-Public Use
  Company Number: US-ROCHE-2600066

PATIENT
  Age: 61 Year
  Sex: Male
  Weight: 72.64 kg

DRUGS (3)
  1. LYRICA [Concomitant]
     Active Substance: PREGABALIN
     Dosage: 6 CAPS/DAILY, INCREASE 8/DAILY, WEEKEND OFF
     Route: 065
  2. NUCYNTA [Concomitant]
     Active Substance: TAPENTADOL HYDROCHLORIDE
  3. OCREVUS [Suspect]
     Active Substance: OCRELIZUMAB
     Indication: RELAPSING-REMITTING MULTIPLE SCLEROSIS
     Route: 042
     Dates: start: 201909

REACTIONS (3)
  - Immunodeficiency [Unknown]
  - Pneumonia [Recovered/Resolved]
  - Labyrinthitis [Recovered/Resolved]

NARRATIVE: CASE EVENT DATE: 20191111
